FAERS Safety Report 5763990-0 (Version None)
Quarter: 2008Q2

REPORT INFORMATION
  Report Type: 
  Country: None (occurrence: None)
  Receive Date: 20080609
  Receipt Date: 20080226
  Transmission Date: 20081010
  Serious: No
  Sender: FDA-Public Use
  Company Number: 002#2#2008-00087

PATIENT
  Age: 80 Year
  Sex: Female
  Weight: 77.1115 kg

DRUGS (11)
  1. NEUPRO [Suspect]
     Indication: PARKINSON'S DISEASE
     Dosage: SEE IMAGE
     Route: 062
     Dates: start: 20080101, end: 20080101
  2. NEUPRO [Suspect]
     Indication: PARKINSON'S DISEASE
     Dosage: SEE IMAGE
     Route: 062
     Dates: start: 20080101, end: 20080101
  3. NEUPRO [Suspect]
     Indication: PARKINSON'S DISEASE
     Dosage: SEE IMAGE
     Route: 062
     Dates: start: 20080101, end: 20080101
  4. NEUPRO [Suspect]
     Indication: PARKINSON'S DISEASE
     Dosage: SEE IMAGE
     Route: 062
     Dates: start: 20080101, end: 20080101
  5. LASIX [Concomitant]
  6. SYNTHROID [Concomitant]
  7. SINEMET [Concomitant]
  8. AMANTADINE HCL [Concomitant]
  9. REQUIP [Concomitant]
  10. XANAX [Concomitant]
  11. NITROFURION [Concomitant]

REACTIONS (1)
  - BLOOD PRESSURE INCREASED [None]
